FAERS Safety Report 19144908 (Version 1)
Quarter: 2021Q2

REPORT INFORMATION
  Report Type: Spontaneous
  Country: DE (occurrence: DE)
  Receive Date: 20210416
  Receipt Date: 20210416
  Transmission Date: 20210717
  Serious: Yes (Death, Hospitalization)
  Sender: FDA-Public Use
  Company Number: DE-MYLANLABS-2021M1021365

PATIENT
  Age: 59 Year
  Sex: Male

DRUGS (7)
  1. PIPERACILLIN/TAZOBACTAM [Concomitant]
     Active Substance: PIPERACILLIN SODIUM\TAZOBACTAM SODIUM
     Indication: ANTIBIOTIC THERAPY
     Route: 065
     Dates: start: 2020
  2. NOREPINEPHRINE. [Suspect]
     Active Substance: NOREPINEPHRINE
     Indication: BLOOD PRESSURE DECREASED
     Dosage: 20MG/50ML
     Route: 065
     Dates: start: 2020
  3. ROACTEMRA [Concomitant]
     Active Substance: TOCILIZUMAB
     Indication: COVID-19 PNEUMONIA
     Dosage: 600 MILLIGRAM
     Route: 042
     Dates: start: 2020
  4. AMIODARONE [Suspect]
     Active Substance: AMIODARONE
     Indication: VENTRICULAR ARRHYTHMIA
     Dosage: UNK
     Route: 065
     Dates: start: 2020
  5. HYDROXYCHLOROQUINE [Suspect]
     Active Substance: HYDROXYCHLOROQUINE
     Indication: COVID-19 PNEUMONIA
     Route: 065
     Dates: start: 2020
  6. NOREPINEPHRINE. [Suspect]
     Active Substance: NOREPINEPHRINE
     Dosage: 15 MILLILITER, QH
     Route: 065
     Dates: start: 2020
  7. AZITHROMYCIN ANHYDROUS. [Suspect]
     Active Substance: AZITHROMYCIN ANHYDROUS
     Indication: COVID-19 PNEUMONIA
     Dosage: UNK
     Route: 065
     Dates: start: 2020

REACTIONS (2)
  - Drug ineffective [Fatal]
  - Off label use [Fatal]

NARRATIVE: CASE EVENT DATE: 2020
